FAERS Safety Report 9052739 (Version 1)
Quarter: 2013Q1

REPORT INFORMATION
  Report Type: Spontaneous
  Country: GB (occurrence: GB)
  Receive Date: 20130207
  Receipt Date: 20130207
  Transmission Date: 20140127
  Serious: Yes (Life-Threatening)
  Sender: FDA-Public Use
  Company Number: GB-JNJFOC-20130202902

PATIENT
  Age: 67 Year
  Sex: 0
  Weight: 114 kg

DRUGS (9)
  1. XARELTO [Suspect]
     Indication: CEREBROVASCULAR ACCIDENT PROPHYLAXIS
     Route: 048
     Dates: start: 20121214, end: 20130115
  2. XARELTO [Suspect]
     Indication: DIABETES MELLITUS
     Route: 048
     Dates: start: 20121214, end: 20130115
  3. XARELTO [Suspect]
     Indication: ATRIAL FIBRILLATION
     Route: 048
     Dates: start: 20121214, end: 20130115
  4. CO-AMILOFRUSE [Concomitant]
     Route: 065
  5. WARFARIN [Concomitant]
     Route: 065
  6. SITAGLIPTIN [Concomitant]
     Route: 065
  7. BISOPROLOL [Concomitant]
     Route: 065
  8. DIGOXINE [Concomitant]
     Route: 065
  9. METFORMIN [Concomitant]
     Route: 065

REACTIONS (3)
  - Ischaemic stroke [Unknown]
  - Lacunar infarction [Unknown]
  - Drug dose omission [Unknown]
